FAERS Safety Report 8214998-7 (Version None)
Quarter: 2012Q1

REPORT INFORMATION
  Report Type: 
  Country: None (occurrence: None)
  Receive Date: 20120316
  Receipt Date: 20120305
  Transmission Date: 20120608
  Serious: No
  Sender: FDA-Public Use
  Company Number: US-BAYER-2012-021967

PATIENT
  Sex: Female

DRUGS (2)
  1. BEYAZ [Suspect]
     Dosage: UNK
     Dates: start: 20110101, end: 20120101
  2. YAZ [Suspect]
     Dosage: UNK
     Dates: start: 20080101, end: 20110101

REACTIONS (1)
  - MENSTRUATION DELAYED [None]
